FAERS Safety Report 11066617 (Version 1)
Quarter: 2015Q2

REPORT INFORMATION
  Report Type: Spontaneous
  Country: US (occurrence: None)
  Receive Date: 20150416
  Receipt Date: 20150416
  Transmission Date: 20150821
  Serious: Yes (Other)
  Sender: FDA-Public Use
  Company Number: 2013P1020275

PATIENT
  Age: 49 Year
  Sex: Female

DRUGS (3)
  1. VENTAVIS (ILOPROST TROMETRAMOL) [Concomitant]
  2. PLAQUENIL [Suspect]
     Active Substance: HYDROXYCHLOROQUINE SULFATE
  3. LETAIRIS [Suspect]
     Active Substance: AMBRISENTAN
     Route: 048
     Dates: start: 20130227

REACTIONS (13)
  - Constipation [None]
  - Dyspepsia [None]
  - Rash pruritic [None]
  - Dysphonia [None]
  - Pruritus [None]
  - Chest pain [None]
  - Nasal congestion [None]
  - Chest discomfort [None]
  - Fatigue [None]
  - Macular degeneration [None]
  - Palpitations [None]
  - Dysgeusia [None]
  - Diarrhoea [None]
